FAERS Safety Report 10008489 (Version 1)
Quarter: 2014Q1

REPORT INFORMATION
  Report Type: Report from Study
  Country: GW (occurrence: GW)
  Receive Date: 20140313
  Receipt Date: 20140313
  Transmission Date: 20141002
  Serious: Yes (Death)
  Sender: FDA-Public Use
  Company Number: GW-ABBVIE-14P-071-1211820-00

PATIENT
  Sex: Female

DRUGS (5)
  1. KALETRA [Suspect]
     Indication: HIV INFECTION
     Dosage: UNIT DOSE:200/50 MG?DAILY DOSE:800/200
     Route: 048
     Dates: start: 20120730
  2. TENOFOVIR [Concomitant]
     Indication: HIV INFECTION
     Dates: start: 20120730
  3. EMTRICITABINE [Concomitant]
     Indication: HIV INFECTION
     Dates: start: 20120730
  4. COTRIMOXAZOLE [Concomitant]
     Indication: PROPHYLAXIS
     Route: 048
     Dates: start: 20120130
  5. FERROUS SULPHATE [Concomitant]
     Indication: MINERAL SUPPLEMENTATION
     Dates: start: 20120130

REACTIONS (1)
  - Death [Fatal]
